FAERS Safety Report 4625772-2 (Version None)
Quarter: 2005Q1

REPORT INFORMATION
  Report Type: 
  Country: None (occurrence: None)
  Receive Date: 20050330
  Receipt Date: 20050316
  Transmission Date: 20050727
  Serious: Yes (Death, Hospitalization)
  Sender: FDA-Public Use
  Company Number: EWC050343253

PATIENT
  Age: 74 Year
  Sex: Female

DRUGS (4)
  1. ZYPREXA [Suspect]
     Indication: AGITATION
     Dosage: 10 MG/1 DAY
     Dates: start: 20040801, end: 20040902
  2. ZYPREXA [Suspect]
     Indication: DELIRIUM
     Dosage: 10 MG/1 DAY
     Dates: start: 20040801, end: 20040902
  3. BENZODIAZEPINE [Concomitant]
  4. TRANXENE [Concomitant]

REACTIONS (2)
  - CEREBELLAR ATAXIA [None]
  - SUDDEN DEATH [None]
